FAERS Safety Report 9716440 (Version 2)
Quarter: 2014Q1

REPORT INFORMATION
  Report Type: Spontaneous
  Country: JP (occurrence: None)
  Receive Date: 20131125
  Receipt Date: 20140321
  Transmission Date: 20141002
  Serious: Yes (Death)
  Sender: FDA-Public Use
  Company Number: JP-013679

PATIENT
  Sex: Male

DRUGS (2)
  1. DEGARELIX [Suspect]
     Indication: PROSTATE CANCER
     Dosage: (80 MG 1X/MONTH,  DAILY DOSE 80 MG CYCLIC. SUBCUTANEOUS)
     Route: 058
     Dates: end: 201310
  2. DENOSUMAB [Concomitant]

REACTIONS (2)
  - Intentional drug misuse [None]
  - Metastases to liver [None]
